FAERS Safety Report 7949384-8 (Version None)
Quarter: 2011Q4

REPORT INFORMATION
  Report Type: 
  Country: None (occurrence: None)
  Receive Date: 20111130
  Receipt Date: 20111121
  Transmission Date: 20120403
  Serious: Yes (Other)
  Sender: FDA-Public Use
  Company Number: US-GLAXOSMITHKLINE-A0954127A

PATIENT
  Age: 49 Year
  Sex: Male

DRUGS (6)
  1. FLUTICASONE PROPIONATE/SALMETEROL [Suspect]
     Indication: PRODUCT USED FOR UNKNOWN INDICATION
     Dosage: 1PUFF TWICE PER DAY
     Route: 055
     Dates: start: 20100701
  2. COMBIVENT [Concomitant]
  3. SPIRIVA [Concomitant]
  4. LISINOPRIL [Concomitant]
  5. WARFARIN SODIUM [Concomitant]
  6. UNSPECIFIED MEDICATION [Concomitant]

REACTIONS (3)
  - VISUAL ACUITY REDUCED [None]
  - DIPLOPIA [None]
  - VISION BLURRED [None]
